FAERS Safety Report 6098873-2 (Version None)
Quarter: 2009Q1

REPORT INFORMATION
  Report Type: 
  Country: None (occurrence: None)
  Receive Date: 20090302
  Receipt Date: 20090220
  Transmission Date: 20090719
  Serious: Yes (Hospitalization)
  Sender: FDA-Public Use
  Company Number: B0560710A

PATIENT
  Age: 26 Year
  Sex: Male

DRUGS (2)
  1. IMIJECT [Suspect]
     Indication: CLUSTER HEADACHE
     Dosage: 4INJ PER DAY
     Route: 058
     Dates: start: 20090129, end: 20090129
  2. ISOPTIN SR [Concomitant]
     Route: 048

REACTIONS (6)
  - ABDOMINAL PAIN [None]
  - ABDOMINAL PAIN LOWER [None]
  - COLITIS ISCHAEMIC [None]
  - DIARRHOEA HAEMORRHAGIC [None]
  - OVERDOSE [None]
  - RECTAL TENESMUS [None]
